FAERS Safety Report 4351465-5 (Version None)
Quarter: 2004Q2

REPORT INFORMATION
  Report Type: 
  Country: None (occurrence: None)
  Receive Date: 20040503
  Receipt Date: 20040427
  Transmission Date: 20050107
  Serious: Yes (Other)
  Sender: FDA-Public Use
  Company Number: US-BRISTOL-MYERS SQUIBB COMPANY-12571741

PATIENT
  Age: 83 Year
  Sex: Female
  Weight: 89 kg

DRUGS (6)
  1. ERBITUX [Suspect]
     Indication: COLON CANCER METASTATIC
     Dosage: 1ST INFUSION. 500 MG DOSE, 100 MG RECEIVED
     Route: 042
     Dates: start: 20040413, end: 20040413
  2. KYTRIL [Concomitant]
     Indication: PREMEDICATION
     Dosage: IV PUSH
     Route: 042
     Dates: start: 20040413, end: 20040413
  3. BENADRYL [Concomitant]
     Indication: PREMEDICATION
     Route: 042
     Dates: start: 20040413, end: 20040413
  4. TYLENOL (CAPLET) [Concomitant]
     Indication: PREMEDICATION
     Route: 048
     Dates: start: 20040413, end: 20040413
  5. MINITRAN [Concomitant]
  6. ASPIRIN [Concomitant]

REACTIONS (2)
  - ERYTHEMA [None]
  - PRURITUS GENERALISED [None]
